FAERS Safety Report 7150833-6 (Version None)
Quarter: 2010Q4

REPORT INFORMATION
  Report Type: 
  Country: None (occurrence: None)
  Receive Date: 20101210
  Receipt Date: 20101202
  Transmission Date: 20110411
  Serious: Yes (Hospitalization)
  Sender: FDA-Public Use
  Company Number: US-ROCHE-737526

PATIENT
  Age: 82 Year
  Sex: Female
  Weight: 98.9 kg

DRUGS (5)
  1. BEVACIZUMAB [Suspect]
     Indication: RENAL CELL CARCINOMA
     Route: 042
     Dates: start: 20100617, end: 20101007
  2. METOPROLOL [Concomitant]
     Indication: CORONARY ARTERY DISEASE
     Route: 048
     Dates: start: 20070101
  3. VASOTEC [Concomitant]
     Indication: CORONARY ARTERY DISEASE
     Dosage: FREQUENCY REPORTED AS DAILY
     Dates: start: 20070101
  4. SIMVASTATIN [Concomitant]
     Dosage: FREQUENCY: QD
     Route: 048
     Dates: start: 20070101
  5. ASPIRIN [Concomitant]
     Indication: CARDIOVASCULAR EVENT PROPHYLAXIS
     Dosage: FREQUENCY: QD
     Route: 048
     Dates: start: 20000101

REACTIONS (2)
  - BLOOD SODIUM DECREASED [None]
  - PLEURAL EFFUSION [None]
